FAERS Safety Report 25705448 (Version 1)
Quarter: 2025Q3

REPORT INFORMATION
  Report Type: Spontaneous
  Country: US (occurrence: US)
  Receive Date: 20250820
  Receipt Date: 20250820
  Transmission Date: 20251020
  Serious: Yes (Hospitalization, Other)
  Sender: AMGEN
  Company Number: US-AMGEN-USASP2025162322

PATIENT
  Age: 3 Decade
  Sex: Female

DRUGS (6)
  1. RITUXIMAB [Suspect]
     Active Substance: RITUXIMAB
     Indication: Systemic lupus erythematosus
     Dosage: UNK UNK, QMO, INFUSION
     Route: 065
  2. RITUXIMAB [Suspect]
     Active Substance: RITUXIMAB
     Indication: Immune thrombocytopenia
  3. MYCOPHENOLATE MOFETIL [Concomitant]
     Active Substance: MYCOPHENOLATE MOFETIL
     Indication: Glomerulonephritis proliferative
     Dosage: 250 MILLIGRAM, BID
  4. MYCOPHENOLATE MOFETIL [Concomitant]
     Active Substance: MYCOPHENOLATE MOFETIL
     Indication: Immune thrombocytopenia
     Dosage: 1000 MILLIGRAM, TID
  5. MYCOPHENOLATE MOFETIL [Concomitant]
     Active Substance: MYCOPHENOLATE MOFETIL
     Dosage: 500 MILLIGRAM, BID
  6. HYDROXYCHLOROQUINE [Concomitant]
     Active Substance: HYDROXYCHLOROQUINE

REACTIONS (19)
  - Colitis [Unknown]
  - Seizure [Recovered/Resolved]
  - Immune thrombocytopenia [Unknown]
  - Posterior reversible encephalopathy syndrome [Unknown]
  - End stage renal disease [Unknown]
  - Dyspnoea [Unknown]
  - Hypertension [Unknown]
  - Peripheral swelling [Unknown]
  - Hyperkalaemia [Unknown]
  - Acute kidney injury [Unknown]
  - Butterfly rash [Unknown]
  - Oedema [Recovered/Resolved]
  - Normocytic anaemia [Unknown]
  - Metabolic acidosis [Unknown]
  - Oesophagitis [Unknown]
  - Dehydration [Unknown]
  - Gastritis [Unknown]
  - Gastrointestinal disorder [Unknown]
  - Off label use [Unknown]
